FAERS Safety Report 8063208-2 (Version None)
Quarter: 2012Q1

REPORT INFORMATION
  Report Type: 
  Country: None (occurrence: None)
  Receive Date: 20120123
  Receipt Date: 20120119
  Transmission Date: 20120608
  Serious: Yes (Death, Hospitalization)
  Sender: FDA-Public Use
  Company Number: PHEH2011US012907

PATIENT
  Sex: Male
  Weight: 86 kg

DRUGS (2)
  1. INSULIN [Concomitant]
  2. EXJADE [Suspect]
     Dosage: 1500 MG, QD
     Route: 048

REACTIONS (2)
  - NAUSEA [None]
  - CEREBROVASCULAR ACCIDENT [None]
